FAERS Safety Report 26069057 (Version 2)
Quarter: 2025Q4

REPORT INFORMATION
  Report Type: Spontaneous
  Country: PH (occurrence: PH)
  Receive Date: 20251120
  Receipt Date: 20251224
  Transmission Date: 20260118
  Serious: Yes (Life-Threatening, Hospitalization)
  Sender: ALEXION PHARMACEUTICALS
  Company Number: PH-AstraZeneca-CH-00995475A

PATIENT
  Age: 48 Year
  Sex: Female
  Weight: 92 kg

DRUGS (8)
  1. XIGDUO XR [Suspect]
     Active Substance: DAPAGLIFLOZIN PROPANEDIOL\METFORMIN HYDROCHLORIDE
     Indication: Diabetes mellitus
     Dosage: 10 MILLIGRAM, QHS
     Route: 061
     Dates: end: 20251116
  2. XIGDUO XR [Suspect]
     Active Substance: DAPAGLIFLOZIN PROPANEDIOL\METFORMIN HYDROCHLORIDE
     Dosage: UNK
     Route: 065
     Dates: start: 20251129, end: 20251213
  3. INSULIN NOS [Concomitant]
     Active Substance: INSULIN NOS
  4. ATORVASTATIN [Concomitant]
     Active Substance: ATORVASTATIN
     Route: 065
  5. LOSARTAN [Concomitant]
     Active Substance: LOSARTAN
     Dosage: LOSARTAN 50MG OD
     Route: 065
  6. CEFTRIAXONE [Concomitant]
     Active Substance: CEFTRIAXONE
     Route: 061
  7. ERTAPENEM [Concomitant]
     Active Substance: ERTAPENEM
     Route: 065
  8. COTRIMOXAZOLE [Concomitant]
     Active Substance: SULFAMETHOXAZOLE\TRIMETHOPRIM
     Route: 061

REACTIONS (4)
  - Septic shock [Recovering/Resolving]
  - Urinary tract infection [Recovering/Resolving]
  - Urosepsis [Unknown]
  - Urosepsis [Unknown]

NARRATIVE: CASE EVENT DATE: 20251116
